FAERS Safety Report 13959585 (Version 2)
Quarter: 2017Q3

REPORT INFORMATION
  Report Type: Spontaneous
  Country: US (occurrence: US)
  Receive Date: 20170912
  Receipt Date: 20170929
  Transmission Date: 20171128
  Serious: Yes (Hospitalization, Other)
  Sender: FDA-Public Use
  Company Number: US-009507513-1709USA004710

PATIENT
  Age: 56 Year
  Sex: Male

DRUGS (1)
  1. ZEPATIER [Suspect]
     Active Substance: ELBASVIR\GRAZOPREVIR
     Indication: CHRONIC HEPATITIS C
     Dosage: 1 TABLET (100/50 MG), ONCE A DAY
     Route: 048
     Dates: start: 201702, end: 201705

REACTIONS (10)
  - Anaemia [Unknown]
  - Haematocrit [Unknown]
  - Faeces discoloured [Unknown]
  - Haemoglobin [Unknown]
  - Gastritis [Recovered/Resolved]
  - Faeces discoloured [Unknown]
  - Haemoglobin [Unknown]
  - Haemorrhage [Recovered/Resolved]
  - Asthenia [Unknown]
  - Fatigue [Unknown]

NARRATIVE: CASE EVENT DATE: 2017
